FAERS Safety Report 15242997 (Version 1)
Quarter: 2018Q3

REPORT INFORMATION
  Report Type: Spontaneous
  Country: US (occurrence: US)
  Receive Date: 20180806
  Receipt Date: 20180806
  Transmission Date: 20181010
  Serious: Yes (Other)
  Sender: FDA-Public Use
  Company Number: US-BAYER-2018-141029

PATIENT
  Age: 86 Year
  Sex: Female
  Weight: 67.98 kg

DRUGS (3)
  1. ALKA?SELTZER PLUS COLD AND COUGH FORMULA [Suspect]
     Active Substance: ACETAMINOPHEN\CHLORPHENIRAMINE\DEXTROMETHORPHAN\PHENYLEPHRINE
     Indication: HYPERSENSITIVITY
     Dosage: 2 DF, Q4HR
     Route: 048
     Dates: start: 20180723
  2. PAIN STOPPER EXTRA [Concomitant]
     Active Substance: ACETAMINOPHEN\ASPIRIN\CAFFEINE\SALICYLAMIDE
     Dosage: 2 DF, QD
     Dates: end: 20180723
  3. ALKA?SELTZER PLUS COLD AND COUGH FORMULA [Suspect]
     Active Substance: ACETAMINOPHEN\CHLORPHENIRAMINE\DEXTROMETHORPHAN\PHENYLEPHRINE
     Indication: NASOPHARYNGITIS
     Dosage: 4 DF, QD
     Route: 048

REACTIONS (3)
  - Cough [None]
  - Nasal congestion [None]
  - Drug dependence [Unknown]
